FAERS Safety Report 9118367 (Version 1)
Quarter: 2013Q1

REPORT INFORMATION
  Report Type: Spontaneous
  Country: US (occurrence: None)
  Receive Date: 20130221
  Receipt Date: 20130221
  Transmission Date: 20140127
  Serious: No
  Sender: FDA-Public Use
  Company Number: None

PATIENT
  Age: 53 Year
  Sex: Male
  Weight: 75 kg

DRUGS (2)
  1. OXYMORPHONE ER [Suspect]
     Indication: INCORRECT DRUG ADMINISTRATION DURATION
     Route: 048
     Dates: start: 201201
  2. OXYMORPHONE ER [Suspect]
     Indication: SPINAL DISORDER
     Route: 048
     Dates: start: 201201

REACTIONS (3)
  - Therapeutic response unexpected with drug substitution [None]
  - Product substitution issue [None]
  - Therapeutic response decreased [None]
